FAERS Safety Report 12449263 (Version 1)
Quarter: 2016Q2

REPORT INFORMATION
  Report Type: Spontaneous
  Country: FR (occurrence: FR)
  Receive Date: 20160608
  Receipt Date: 20160608
  Transmission Date: 20160815
  Serious: Yes (Other)
  Sender: FDA-Public Use
  Company Number: FR-ALLERGAN-1659321US

PATIENT
  Age: 59 Year
  Sex: Female

DRUGS (1)
  1. URSODEOXYCHOLIC ACID UNK [Suspect]
     Active Substance: URSODIOL
     Indication: BILIARY CIRRHOSIS
     Dosage: 500 MG, BID
     Route: 048
     Dates: start: 2013

REACTIONS (4)
  - Oedema [Not Recovered/Not Resolved]
  - Balance disorder [Not Recovered/Not Resolved]
  - Amnesia [Not Recovered/Not Resolved]
  - Headache [Not Recovered/Not Resolved]

NARRATIVE: CASE EVENT DATE: 201602
